FAERS Safety Report 15515999 (Version 1)
Quarter: 2018Q4

REPORT INFORMATION
  Report Type: Spontaneous
  Country: US (occurrence: US)
  Receive Date: 20181017
  Receipt Date: 20181017
  Transmission Date: 20190205
  Serious: No
  Sender: FDA-Public Use
  Company Number: US-PFIZER INC-2018421647

PATIENT
  Sex: Female

DRUGS (1)
  1. LYRICA [Suspect]
     Active Substance: PREGABALIN
     Dosage: 75 MG, UNK

REACTIONS (5)
  - Tremor [Unknown]
  - Pain in extremity [Unknown]
  - Pain [Unknown]
  - Dysgraphia [Unknown]
  - Nerve compression [Not Recovered/Not Resolved]
